FAERS Safety Report 22382527 (Version 1)
Quarter: 2023Q2

REPORT INFORMATION
  Report Type: Spontaneous
  Country: US (occurrence: None)
  Receive Date: 20230526
  Receipt Date: 20230526
  Transmission Date: 20230721
  Serious: No
  Sender: FDA-Public Use
  Company Number: None

PATIENT
  Sex: Female

DRUGS (17)
  1. AMBRISENTAN [Suspect]
     Active Substance: AMBRISENTAN
     Indication: Pulmonary arterial hypertension
     Dosage: FREQUENCY : DAILY;?
     Route: 048
  2. PREDNISONE [Concomitant]
     Active Substance: PREDNISONE
  3. FOLIC ACID [Concomitant]
     Active Substance: FOLIC ACID
  4. FUROSEMIDE [Concomitant]
     Active Substance: FUROSEMIDE
  5. VRAYLAR [Concomitant]
     Active Substance: CARIPRAZINE
  6. ASPIRIN [Concomitant]
     Active Substance: ASPIRIN
  7. TADALAFIL [Concomitant]
     Active Substance: TADALAFIL
  8. VALSARTAN [Concomitant]
     Active Substance: VALSARTAN
  9. THYROID [Concomitant]
     Active Substance: LEVOTHYROXINE\LIOTHYRONINE
  10. NEBIVOLOL HYDROCHLORIDE [Concomitant]
     Active Substance: NEBIVOLOL HYDROCHLORIDE
  11. PRIMIDONE [Concomitant]
     Active Substance: PRIMIDONE
  12. QUETIAPINE FUMARATE [Concomitant]
     Active Substance: QUETIAPINE FUMARATE
  13. ATORVASTATIN [Concomitant]
     Active Substance: ATORVASTATIN
  14. KLONOPIN [Concomitant]
     Active Substance: CLONAZEPAM
  15. vit B-1 [Concomitant]
  16. POTASSIUM CHLORIDE [Concomitant]
     Active Substance: POTASSIUM CHLORIDE
  17. Bit B-12 [Concomitant]

REACTIONS (2)
  - Malaise [None]
  - Nonspecific reaction [None]
